FAERS Safety Report 6827467-3 (Version None)
Quarter: 2010Q3

REPORT INFORMATION
  Report Type: 
  Country: None (occurrence: None)
  Receive Date: 20100709
  Receipt Date: 20100623
  Transmission Date: 20110219
  Serious: Yes (Hospitalization, Other)
  Sender: FDA-Public Use
  Company Number: PHEH2010US03497

PATIENT
  Sex: Male

DRUGS (1)
  1. ZOMETA [Suspect]
     Indication: PROSTATE CANCER METASTATIC
     Dosage: UNK
     Dates: start: 20031120

REACTIONS (17)
  - BODY TINEA [None]
  - CHRONIC OBSTRUCTIVE PULMONARY DISEASE [None]
  - COLON ADENOMA [None]
  - COLON POLYPECTOMY [None]
  - DEHYDRATION [None]
  - DIARRHOEA [None]
  - DIVERTICULUM INTESTINAL [None]
  - EMPHYSEMA [None]
  - GASTROENTERITIS [None]
  - METASTASES TO BONE [None]
  - NAUSEA [None]
  - ORTHOSTATIC HYPOTENSION [None]
  - PROCTITIS [None]
  - PYREXIA [None]
  - RASH [None]
  - THROMBOCYTOPENIA [None]
  - VOMITING [None]
